FAERS Safety Report 14720003 (Version 1)
Quarter: 2018Q2

REPORT INFORMATION
  Report Type: Spontaneous
  Country: DE (occurrence: DE)
  Receive Date: 20180405
  Receipt Date: 20180405
  Transmission Date: 20180711
  Serious: Yes (Hospitalization, Other)
  Sender: FDA-Public Use
  Company Number: DE-HTU-2018DE013765

PATIENT
  Age: 35 Year
  Sex: Female
  Weight: 67 kg

DRUGS (4)
  1. PACLITAXEL. [Concomitant]
     Active Substance: PACLITAXEL
     Indication: BREAST CANCER
     Dosage: 137.6 MILLIGRAM, QWK
     Route: 042
     Dates: start: 20180206, end: 20180320
  2. DEXAMETHASONE. [Suspect]
     Active Substance: DEXAMETHASONE
     Dosage: 16 MILLIGRAM, QWK
     Dates: start: 20180206, end: 20180320
  3. CARBOPLATIN. [Concomitant]
     Active Substance: CARBOPLATIN
     Indication: BREAST CANCER
     Dosage: 687 MILLIGRAM, Q3WK
     Route: 042
     Dates: start: 20180206, end: 20180320
  4. AKYNZEO [Suspect]
     Active Substance: NETUPITANT\PALONOSETRON HYDROCHLORIDE
     Indication: PROPHYLAXIS OF NAUSEA AND VOMITING
     Dosage: 1 DOSAGE FORM, Q3WK
     Route: 048
     Dates: start: 20180206, end: 20180320

REACTIONS (1)
  - Reactive psychosis [Not Recovered/Not Resolved]

NARRATIVE: CASE EVENT DATE: 20180321
